FAERS Safety Report 6840461-1 (Version None)
Quarter: 2010Q3

REPORT INFORMATION
  Report Type: 
  Country: None (occurrence: None)
  Receive Date: 20100714
  Receipt Date: 20100709
  Transmission Date: 20110219
  Serious: Yes (Life-Threatening)
  Sender: FDA-Public Use
  Company Number: PHHY2010FR45007

PATIENT
  Sex: Female
  Weight: 12.5 kg

DRUGS (2)
  1. SIMULECT [Suspect]
     Indication: LIVER TRANSPLANT
     Dosage: 10 MG, QD
     Route: 042
     Dates: start: 20100519
  2. PROGRAF [Concomitant]

REACTIONS (4)
  - ACUTE RESPIRATORY DISTRESS SYNDROME [None]
  - CHEST X-RAY ABNORMAL [None]
  - OXYGEN SUPPLEMENTATION [None]
  - PYREXIA [None]
